FAERS Safety Report 20263796 (Version 1)
Quarter: 2021Q4

REPORT INFORMATION
  Report Type: Spontaneous
  Country: US (occurrence: None)
  Receive Date: 20211231
  Receipt Date: 20211231
  Transmission Date: 20220303
  Serious: Yes (Other)
  Sender: FDA-Public Use
  Company Number: US-ROCHE-2986825

PATIENT
  Age: 67 Year
  Sex: Male
  Weight: 77.180 kg

DRUGS (8)
  1. ACTEMRA [Suspect]
     Active Substance: TOCILIZUMAB
     Indication: Rheumatoid arthritis
     Route: 042
     Dates: start: 2021, end: 202110
  2. ACTEMRA [Suspect]
     Active Substance: TOCILIZUMAB
     Indication: Rheumatoid arthritis
     Dosage: 162 MG PER 0.9 ML ON A THURSDAY
     Route: 058
     Dates: start: 202110
  3. VITAMIN C [Concomitant]
     Active Substance: ASCORBIC ACID
     Indication: Nasopharyngitis
     Route: 048
  4. PREDNISONE [Concomitant]
     Active Substance: PREDNISONE
     Indication: Arthritis
     Route: 048
     Dates: start: 1999
  5. IRON [Concomitant]
     Active Substance: IRON
     Indication: Anaemia
     Route: 048
     Dates: start: 1999
  6. GABAPENTIN [Concomitant]
     Active Substance: GABAPENTIN
     Indication: Diabetic neuropathy
     Route: 048
     Dates: start: 1999
  7. HUMALOG [Concomitant]
     Active Substance: INSULIN LISPRO
     Indication: Diabetes mellitus
     Dosage: SSC GOES FROM 0 TO 14 UNITS, EX; 201-250 TAKE 8 UNITS
     Route: 058
  8. ORENCIA [Concomitant]
     Active Substance: ABATACEPT

REACTIONS (3)
  - Headache [Not Recovered/Not Resolved]
  - Neck pain [Not Recovered/Not Resolved]
  - Road traffic accident [Unknown]

NARRATIVE: CASE EVENT DATE: 20211216
